FAERS Safety Report 4734736-X (Version None)
Quarter: 2005Q3

REPORT INFORMATION
  Report Type: 
  Country: None (occurrence: None)
  Receive Date: 20050804
  Receipt Date: 20050802
  Transmission Date: 20060218
  Serious: Yes (Other)
  Sender: FDA-Public Use
  Company Number: US-GLAXOSMITHKLINE-A0568636A

PATIENT
  Age: 69 Year
  Sex: Male

DRUGS (20)
  1. COREG [Suspect]
     Route: 048
     Dates: start: 20050601
  2. SEREVENT [Concomitant]
  3. SPIRIVA [Concomitant]
  4. SINGULAIR [Concomitant]
  5. COMBIVENT [Concomitant]
  6. LASIX [Concomitant]
  7. LISINOPRIL [Concomitant]
  8. ACIPHEX [Concomitant]
  9. ASPIRIN [Concomitant]
  10. CLARITIN [Concomitant]
  11. COLCHICINE [Concomitant]
  12. KLONOPIN [Concomitant]
  13. COUMADIN [Concomitant]
  14. VIT E [Concomitant]
  15. FISH OIL [Concomitant]
  16. MULTI-VITAMIN [Concomitant]
  17. GLUCOSAMINE + CHONDROITIN [Concomitant]
  18. COQ10 [Concomitant]
  19. L-CARNITINE [Concomitant]
  20. POLICOSANOL [Concomitant]

REACTIONS (6)
  - ASTHMA [None]
  - CARDIAC FAILURE [None]
  - CHEST PAIN [None]
  - DYSPNOEA [None]
  - EXERCISE TOLERANCE DECREASED [None]
  - MUSCULAR WEAKNESS [None]
